FAERS Safety Report 6199739-X (Version None)
Quarter: 2009Q2

REPORT INFORMATION
  Report Type: 
  Country: None (occurrence: None)
  Receive Date: 20090519
  Receipt Date: 20090504
  Transmission Date: 20091009
  Serious: Yes (Hospitalization)
  Sender: FDA-Public Use
  Company Number: 2009S1007744

PATIENT
  Age: 56 Year
  Sex: Female

DRUGS (2)
  1. METFORMIN HCL [Suspect]
     Indication: INTENTIONAL OVERDOSE
     Dosage: 30000 MG;ONCE;ORAL
     Route: 048
  2. ZOLPIDEM [Suspect]
     Indication: INTENTIONAL OVERDOSE
     Dosage: 3000 MG;ONCE;ORAL
     Route: 048

REACTIONS (10)
  - DEPRESSED LEVEL OF CONSCIOUSNESS [None]
  - HAEMODIALYSIS [None]
  - HYPOTENSION [None]
  - HYPOTHERMIA [None]
  - LACTIC ACIDOSIS [None]
  - METABOLIC ACIDOSIS [None]
  - MULTIPLE DRUG OVERDOSE [None]
  - RESPIRATORY ACIDOSIS [None]
  - SUICIDE ATTEMPT [None]
  - TACHYPNOEA [None]
